FAERS Safety Report 13479025 (Version 1)
Quarter: 2017Q2

REPORT INFORMATION
  Report Type: Spontaneous
  Country: BE (occurrence: BE)
  Receive Date: 20170425
  Receipt Date: 20170425
  Transmission Date: 20170830
  Serious: Yes (Life-Threatening, Hospitalization)
  Sender: FDA-Public Use
  Company Number: BE-SA-2017SA072789

PATIENT
  Sex: Male

DRUGS (1)
  1. LEMTRADA [Suspect]
     Active Substance: ALEMTUZUMAB
     Route: 042
     Dates: start: 201604, end: 201604

REACTIONS (4)
  - Haemolytic anaemia [Unknown]
  - Immune thrombocytopenic purpura [Unknown]
  - Off label use [Unknown]
  - Histiocytosis haematophagic [Unknown]
